FAERS Safety Report 7937646-X (Version None)
Quarter: 2011Q4

REPORT INFORMATION
  Report Type: 
  Country: None (occurrence: None)
  Receive Date: 20111123
  Receipt Date: 20111122
  Transmission Date: 20120403
  Serious: Yes (Life-Threatening)
  Sender: FDA-Public Use
  Company Number: US-CEPHALON-2011005509

PATIENT
  Sex: Female

DRUGS (2)
  1. TREANDA [Suspect]
     Indication: MULTIPLE MYELOMA
     Route: 042
     Dates: start: 20110729, end: 20111028
  2. DEXAMETHASONE [Concomitant]
     Route: 048

REACTIONS (3)
  - SWOLLEN TONGUE [None]
  - HYPERTENSION [None]
  - RASH PRURITIC [None]
